FAERS Safety Report 7786657-6 (Version None)
Quarter: 2011Q3

REPORT INFORMATION
  Report Type: 
  Country: None (occurrence: None)
  Receive Date: 20110929
  Receipt Date: 20110927
  Transmission Date: 20111222
  Serious: No
  Sender: FDA-Public Use
  Company Number: US-PFIZER INC-2011230559

PATIENT
  Sex: Male
  Weight: 98.866 kg

DRUGS (8)
  1. CHANTIX [Suspect]
     Indication: SMOKING CESSATION THERAPY
     Dosage: 1 MG, 1X/DAY
     Route: 048
     Dates: start: 20110805
  2. PROMETHAZINE [Concomitant]
     Indication: NAUSEA
     Dosage: 25 MG, 1X/DAY
  3. ULTRAM ER [Concomitant]
     Dosage: 200 MG, 1X/DAY
  4. FLUOXETINE [Concomitant]
     Indication: DEPRESSION
     Dosage: 20 MG, 1X/DAY
  5. HYDROCHLOROTHIAZIDE [Concomitant]
     Indication: HYPERTENSION
     Dosage: 25 MG, 1X/DAY
  6. TRAMADOL [Concomitant]
     Dosage: 50 MG, 2-3X/DAY AS NEEDED
  7. PROPRANOLOL [Concomitant]
     Indication: HYPERTENSION
     Dosage: 40 MG, 2X/DAY
  8. NEXIUM [Concomitant]
     Dosage: 40 MG, 1X/DAY

REACTIONS (8)
  - FEELING ABNORMAL [None]
  - DRY MOUTH [None]
  - PARAESTHESIA [None]
  - RASH [None]
  - FATIGUE [None]
  - NERVOUSNESS [None]
  - FEAR [None]
  - DIZZINESS [None]
